FAERS Safety Report 6895391-6 (Version None)
Quarter: 2010Q3

REPORT INFORMATION
  Report Type: 
  Country: None (occurrence: None)
  Receive Date: 20100802
  Receipt Date: 20100721
  Transmission Date: 20110219
  Serious: Yes (Hospitalization)
  Sender: FDA-Public Use
  Company Number: JP-PFIZER INC-2010055158

PATIENT
  Age: 50 Year
  Sex: Female
  Weight: 44.5 kg

DRUGS (9)
  1. SUNITINIB MALATE [Suspect]
     Indication: RENAL CELL CARCINOMA
     Dosage: 25 MG, 1X/DAY
     Dates: start: 20080625, end: 20090525
  2. ALOSITOL [Concomitant]
     Dosage: UNK
     Route: 048
  3. ASPIRIN [Concomitant]
     Dosage: UNK
     Route: 048
  4. LASIX [Concomitant]
     Dosage: UNK
     Route: 048
  5. OLMESARTAN MEDOXOMIL [Concomitant]
     Dosage: UNK
     Route: 048
     Dates: start: 20080702
  6. NORVASC [Concomitant]
     Dosage: UNK
     Route: 048
     Dates: start: 20080710
  7. PROMAC /JPN/ [Concomitant]
     Dosage: UNK
     Route: 048
  8. ASCORBIC ACID [Concomitant]
     Dosage: UNK
     Route: 048
     Dates: start: 20081215
  9. DOXAZOSIN MESYLATE [Concomitant]
     Dosage: UNK
     Route: 048
     Dates: start: 20081215

REACTIONS (3)
  - HYPONATRAEMIA [None]
  - NEUTROPHIL COUNT DECREASED [None]
  - PNEUMONIA [None]
